FAERS Safety Report 25206614 (Version 1)
Quarter: 2025Q2

REPORT INFORMATION
  Report Type: Spontaneous
  Country: JP (occurrence: JP)
  Receive Date: 20250417
  Receipt Date: 20250417
  Transmission Date: 20250717
  Serious: Yes (Hospitalization, Other)
  Sender: INGENUS
  Company Number: JP-INGENUS PHARMACEUTICALS NJ, LLC-2025ING000034

PATIENT
  Age: 60 Year
  Sex: Male
  Weight: 60 kg

DRUGS (7)
  1. MAGNESIUM OXIDE [Suspect]
     Active Substance: MAGNESIUM OXIDE
     Indication: Bowel movement irregularity
     Dosage: 2000 MILLIGRAM, QD
     Route: 048
  2. MAGNESIUM CITRATE [Suspect]
     Active Substance: MAGNESIUM CITRATE
     Indication: Bowel movement irregularity
     Route: 065
  3. PROPOFOL [Concomitant]
     Active Substance: PROPOFOL
     Indication: Induction of anaesthesia
     Route: 065
  4. ROCURONIUM [Concomitant]
     Active Substance: ROCURONIUM BROMIDE
     Indication: Induction of anaesthesia
     Route: 065
  5. FENTANYL [Concomitant]
     Active Substance: FENTANYL
     Indication: Induction and maintenance of anaesthesia
     Route: 065
  6. DESFLURANE [Concomitant]
     Active Substance: DESFLURANE
     Indication: Maintenance of anaesthesia
     Route: 065
  7. REMIFENTANIL [Concomitant]
     Active Substance: REMIFENTANIL
     Indication: Maintenance of anaesthesia
     Route: 065

REACTIONS (5)
  - Hypermagnesaemia [Recovered/Resolved]
  - Hypotonia [Recovered/Resolved]
  - Depressed level of consciousness [Recovered/Resolved]
  - Prescribed overdose [Recovered/Resolved]
  - Product use in unapproved indication [Unknown]
